FAERS Safety Report 24952307 (Version 2)
Quarter: 2025Q1

REPORT INFORMATION
  Report Type: Spontaneous
  Country: US (occurrence: US)
  Receive Date: 20250210
  Receipt Date: 20250213
  Transmission Date: 20250408
  Serious: Yes (Other)
  Sender: ZO SKIN HEALTH
  Company Number: US-ZO SKIN HEALTH-2025ZOS00010

PATIENT
  Age: 65 Year
  Sex: Female

DRUGS (6)
  1. HYDROQUINONE [Suspect]
     Active Substance: HYDROQUINONE
     Indication: Chloasma
     Dosage: PEA SIZE AMOUNT TO WHOLE FACE, 2X/DAY
     Route: 061
     Dates: start: 20250120, end: 20250124
  2. CLINDAMYCIN [Concomitant]
     Active Substance: CLINDAMYCIN
  3. LEXAPRO [Concomitant]
     Active Substance: ESCITALOPRAM OXALATE
  4. PANTOPRAZOLE [Concomitant]
     Active Substance: PANTOPRAZOLE
  5. XANAX [Concomitant]
     Active Substance: ALPRAZOLAM
  6. IRON [Concomitant]
     Active Substance: IRON

REACTIONS (5)
  - Pyoderma [Recovering/Resolving]
  - Skin irritation [Recovering/Resolving]
  - Hypersensitivity [Recovering/Resolving]
  - Dry skin [Recovering/Resolving]
  - Dermatitis contact [Recovering/Resolving]

NARRATIVE: CASE EVENT DATE: 20250123
